FAERS Safety Report 9614372 (Version 2)
Quarter: 2015Q2

REPORT INFORMATION
  Report Type: Other
  Country: JP (occurrence: JP)
  Receive Date: 20131011
  Receipt Date: 20150423
  Transmission Date: 20150821
  Serious: Yes (Hospitalization)
  Sender: FDA-Public Use
  Company Number: JP-ACTELION-A-CH2013-89496

PATIENT
  Age: 60 Year
  Sex: Female

DRUGS (3)
  1. BERAPROST [Concomitant]
     Active Substance: BERAPROST
  2. TRACLEER [Suspect]
     Active Substance: BOSENTAN\BOSENTAN MONOHYDRATE
     Indication: PULMONARY ARTERIAL HYPERTENSION
     Dosage: UNK
     Route: 048
     Dates: start: 2009
  3. SILDENAFIL. [Concomitant]
     Active Substance: SILDENAFIL

REACTIONS (14)
  - Heart sounds abnormal [Recovering/Resolving]
  - Vomiting [Recovering/Resolving]
  - Disease progression [Unknown]
  - Pulmonary arterial hypertension [Unknown]
  - Arteriogram coronary [Unknown]
  - Blood pressure decreased [Recovering/Resolving]
  - Vascular compression [Recovered/Resolved]
  - Coronary arterial stent insertion [Unknown]
  - Blood creatine phosphokinase increased [Recovering/Resolving]
  - Loss of consciousness [Recovering/Resolving]
  - Blood creatine phosphokinase MB increased [Recovering/Resolving]
  - Chest pain [Recovering/Resolving]
  - Heart rate increased [Recovering/Resolving]
  - Acute myocardial infarction [Recovering/Resolving]

NARRATIVE: CASE EVENT DATE: 2011
